FAERS Safety Report 21144977 (Version 1)
Quarter: 2022Q3

REPORT INFORMATION
  Report Type: Spontaneous
  Country: CN (occurrence: CN)
  Receive Date: 20220728
  Receipt Date: 20220728
  Transmission Date: 20221027
  Serious: Yes (Other)
  Sender: FDA-Public Use
  Company Number: CN-SUN PHARMACEUTICAL INDUSTRIES LTD-2022R1-346258

PATIENT
  Age: 40 Year
  Sex: Male
  Weight: 45 kg

DRUGS (4)
  1. CEFOPERAZONE\SULBACTAM [Suspect]
     Active Substance: CEFOPERAZONE\SULBACTAM
     Indication: Anti-infective therapy
     Dosage: 6 GRAM Q12H
     Route: 042
  2. DEXAMETHASONE [Suspect]
     Active Substance: DEXAMETHASONE
     Indication: Product used for unknown indication
     Dosage: 5 MILLIGRAM, QD
     Route: 042
  3. LORATADINE [Suspect]
     Active Substance: LORATADINE
     Indication: Antiallergic therapy
     Dosage: 10 MILLIGRAM, QD
     Route: 048
  4. CALCIUM GLUCONATE [Suspect]
     Active Substance: CALCIUM GLUCONATE
     Indication: Product used for unknown indication
     Dosage: 1 GRAM, QD
     Route: 042

REACTIONS (3)
  - Drug ineffective [Unknown]
  - Arthralgia [Unknown]
  - Oral mucosal blistering [Unknown]
